FAERS Safety Report 6426852-1 (Version None)
Quarter: 2009Q4

REPORT INFORMATION
  Report Type: 
  Country: None (occurrence: None)
  Receive Date: 20091103
  Receipt Date: 20091103
  Transmission Date: 20100525
  Serious: Yes (Hospitalization)
  Sender: FDA-Public Use
  Company Number: None

PATIENT
  Age: 56 Year
  Sex: Male

DRUGS (2)
  1. HYDROCHLOROTHIAZIDE [Suspect]
     Dosage: 25 MG ONCE PO
     Route: 048
     Dates: start: 20090307, end: 20090324
  2. LISINOPRIL [Suspect]
     Dosage: 5 MG EVERY DAY PO
     Route: 048
     Dates: start: 20090307, end: 20090324

REACTIONS (2)
  - PANCREATITIS [None]
  - RENAL FAILURE ACUTE [None]
